FAERS Safety Report 5201964-9 (Version None)
Quarter: 2007Q1

REPORT INFORMATION
  Report Type: 
  Country: None (occurrence: None)
  Receive Date: 20070104
  Receipt Date: 20070104
  Transmission Date: 20070707
  Serious: Yes (Hospitalization)
  Sender: FDA-Public Use
  Company Number: None

PATIENT
  Sex: Female
  Weight: 106.5953 kg

DRUGS (21)
  1. ARANESP [Suspect]
     Indication: ANAEMIA
     Dosage: 200 MCG  WKLY   SQ
     Route: 058
     Dates: start: 20061027, end: 20061213
  2. CARBOPLATIN [Suspect]
     Indication: NON-SMALL CELL LUNG CANCER
     Dosage: 558 MG  Q3WKS  IV
     Route: 042
     Dates: start: 20061011, end: 20061213
  3. TAXOTERE [Suspect]
     Indication: NON-SMALL CELL LUNG CANCER
     Dosage: 75MG/M^2   Q3WKS   IV
     Route: 042
     Dates: start: 20061011, end: 20061213
  4. ALDACTONE [Concomitant]
  5. THEOPHYLLINE [Concomitant]
  6. AMIODARONE HCL [Concomitant]
  7. PRILOSEC [Concomitant]
  8. DIGOXIN [Concomitant]
  9. MARINOL [Concomitant]
  10. ASPIRIN [Concomitant]
  11. MEGACE [Concomitant]
  12. COUMADIN [Concomitant]
  13. AMBIEN [Concomitant]
  14. FLEXERIL [Concomitant]
  15. GLUCOSAMINE [Concomitant]
  16. K-TAB [Concomitant]
  17. LASIX [Concomitant]
  18. MEVACOR [Concomitant]
  19. GLYBURIDE [Concomitant]
  20. PRINIVIL [Concomitant]
  21. PROTONIX [Concomitant]

REACTIONS (11)
  - ATRIAL FIBRILLATION [None]
  - CARDIAC FAILURE CONGESTIVE [None]
  - CARDIOMYOPATHY [None]
  - CHRONIC OBSTRUCTIVE PULMONARY DISEASE [None]
  - CONDITION AGGRAVATED [None]
  - DIABETES MELLITUS NON-INSULIN-DEPENDENT [None]
  - DIARRHOEA [None]
  - GASTROINTESTINAL HAEMORRHAGE [None]
  - LEUKOCYTOSIS [None]
  - NON-SMALL CELL LUNG CANCER [None]
  - RECTAL HAEMORRHAGE [None]
